FAERS Safety Report 4461913-8 (Version None)
Quarter: 2004Q3

REPORT INFORMATION
  Report Type: 
  Country: None (occurrence: None)
  Receive Date: 20040929
  Receipt Date: 20031117
  Transmission Date: 20050211
  Serious: No
  Sender: FDA-Public Use
  Company Number: US-GLAXOSMITHKLINE-A0440022A

PATIENT
  Age: 51 Year
  Sex: Female

DRUGS (9)
  1. SEREVENT [Suspect]
     Dosage: 1PUFF TWICE PER DAY
     Route: 055
     Dates: start: 20030901
  2. COMBIVENT [Concomitant]
  3. CLONIDINE HCL [Concomitant]
  4. ATENOLOL [Concomitant]
  5. PAXIL [Concomitant]
  6. ZOCOR [Concomitant]
  7. PROVERA [Concomitant]
  8. VERAPAMIL [Concomitant]
  9. ESTRATEST [Concomitant]

REACTIONS (2)
  - DYSPNOEA [None]
  - PHARMACEUTICAL PRODUCT COMPLAINT [None]
